FAERS Safety Report 23340995 (Version 1)
Quarter: 2023Q4

REPORT INFORMATION
  Report Type: Spontaneous
  Country: GB (occurrence: GB)
  Receive Date: 20231227
  Receipt Date: 20231227
  Transmission Date: 20240109
  Serious: Yes (Other)
  Sender: FDA-Public Use
  Company Number: GB-ALKEM LABORATORIES LIMITED-GB-ALKEM-2023-15452

PATIENT
  Age: 6 Month

DRUGS (3)
  1. VIGABATRIN [Suspect]
     Active Substance: VIGABATRIN
     Indication: Infantile spasms
     Dosage: UNK
     Route: 065
  2. PREDNISONE [Concomitant]
     Active Substance: PREDNISONE
     Indication: Infantile spasms
     Dosage: UNK
     Route: 065
  3. COSYNTROPIN [Concomitant]
     Active Substance: COSYNTROPIN
     Indication: Infantile spasms
     Dosage: UNK
     Route: 065

REACTIONS (2)
  - Dystonia [Recovering/Resolving]
  - Magnetic resonance imaging head abnormal [Recovering/Resolving]
